FAERS Safety Report 8273234-6 (Version None)
Quarter: 2012Q2

REPORT INFORMATION
  Report Type: 
  Country: None (occurrence: None)
  Receive Date: 20120411
  Receipt Date: 20120404
  Transmission Date: 20120825
  Serious: Yes (Hospitalization, Other)
  Sender: FDA-Public Use
  Company Number: US-PFIZER INC-2012085423

PATIENT
  Age: 73 Year
  Sex: Male
  Weight: 63.18 kg

DRUGS (6)
  1. DIGOXIN [Concomitant]
     Dosage: UNK
  2. TYVASO [Suspect]
     Indication: PULMONARY ARTERIAL HYPERTENSION
     Dosage: 18-54 MCG (4 IN 1 D)
     Dates: start: 20110901
  3. WARFARIN [Concomitant]
     Dosage: UNK
  4. REVATIO [Suspect]
     Dosage: UNK
  5. LASIX [Suspect]
     Dosage: UNK
  6. ASPIRIN [Concomitant]
     Dosage: UNK

REACTIONS (3)
  - CHEST PAIN [None]
  - HEADACHE [None]
  - CARDIAC FAILURE CONGESTIVE [None]
